FAERS Safety Report 5622100-0 (Version None)
Quarter: 2008Q1

REPORT INFORMATION
  Report Type: 
  Country: None (occurrence: None)
  Receive Date: 20080204
  Receipt Date: 20080123
  Transmission Date: 20080703
  Serious: Yes (Hospitalization)
  Sender: FDA-Public Use
  Company Number: 2007337796

PATIENT
  Age: 44 Year
  Sex: Female
  Weight: 105 kg

DRUGS (1)
  1. ROGAINE [Suspect]
     Indication: ALOPECIA
     Dosage: BIGGER AMOUNT THAN PRESCRIBED ONCE DAILY, TOPICAL
     Route: 061
     Dates: start: 20071101, end: 20071101

REACTIONS (2)
  - BURNING SENSATION [None]
  - RASH ERYTHEMATOUS [None]
